FAERS Safety Report 11115525 (Version 1)
Quarter: 2015Q2

REPORT INFORMATION
  Report Type: Spontaneous
  Country: US (occurrence: None)
  Receive Date: 20150514
  Receipt Date: 20150514
  Transmission Date: 20150821
  Serious: No
  Sender: FDA-Public Use
  Company Number: None

PATIENT
  Age: 35 Year
  Sex: Male
  Weight: 102.1 kg

DRUGS (1)
  1. ALFA 2 INTERFERON 2B [Suspect]
     Active Substance: INTERFERON ALFA-2B
     Dates: end: 20120102

REACTIONS (1)
  - Hypophosphataemia [None]

NARRATIVE: CASE EVENT DATE: 20120103
